FAERS Safety Report 20679389 (Version 1)
Quarter: 2022Q2

REPORT INFORMATION
  Report Type: Spontaneous
  Country: JP (occurrence: JP)
  Receive Date: 20220406
  Receipt Date: 20220406
  Transmission Date: 20220721
  Serious: Yes (Other)
  Sender: FDA-Public Use
  Company Number: JP-TAKEDA-2022TJP023521

PATIENT
  Age: 46 Year
  Sex: Female

DRUGS (1)
  1. ZEJULA [Suspect]
     Active Substance: NIRAPARIB
     Indication: Ovarian cancer recurrent
     Dosage: 200 MILLIGRAM, QD
     Route: 048
     Dates: start: 20220119

REACTIONS (3)
  - Metastases to pleura [Unknown]
  - Lymphadenopathy mediastinal [Unknown]
  - Arthralgia [Unknown]

NARRATIVE: CASE EVENT DATE: 20220221
